FAERS Safety Report 9984382 (Version 1)
Quarter: 2014Q1

REPORT INFORMATION
  Report Type: Report from Study
  Country: US (occurrence: US)
  Receive Date: 20140307
  Receipt Date: 20140307
  Transmission Date: 20141002
  Serious: No
  Sender: FDA-Public Use
  Company Number: US-ABBVIE-13P-163-1182868-00

PATIENT
  Age: 65 Year
  Sex: Female

DRUGS (3)
  1. HUMIRA [Suspect]
     Indication: CROHN^S DISEASE
     Dates: start: 201208
  2. DIOVAN HCT [Concomitant]
     Indication: HYPERTENSION
     Dosage: 160 MG- 12.5 MG
  3. LASIX [Concomitant]
     Indication: FLUID RETENTION

REACTIONS (2)
  - Drug dose omission [Not Recovered/Not Resolved]
  - Family stress [Unknown]
